FAERS Safety Report 23083538 (Version 1)
Quarter: 2023Q4

REPORT INFORMATION
  Report Type: Spontaneous
  Country: US (occurrence: US)
  Receive Date: 20231019
  Receipt Date: 20231019
  Transmission Date: 20240110
  Serious: Yes (Other)
  Sender: FDA-Public Use
  Company Number: US-PFIZER INC-PV202300166153

PATIENT
  Age: 65 Year
  Sex: Male

DRUGS (4)
  1. VINCRISTINE SULFATE [Suspect]
     Active Substance: VINCRISTINE SULFATE
     Indication: Chronic lymphocytic leukaemia
     Dosage: 2 CYCLES
  2. ADRIAMYCIN [Suspect]
     Active Substance: DOXORUBICIN HYDROCHLORIDE
     Indication: Chronic lymphocytic leukaemia
     Dosage: 2 CYCLES
  3. BLEOMYCIN SULFATE [Suspect]
     Active Substance: BLEOMYCIN SULFATE
     Indication: Chronic lymphocytic leukaemia
     Dosage: 2 CYCLES
  4. DACARBAZINE [Suspect]
     Active Substance: DACARBAZINE
     Indication: Chronic lymphocytic leukaemia
     Dosage: 2 CYCLES

REACTIONS (1)
  - Infection [Unknown]
